FAERS Safety Report 16672848 (Version 1)
Quarter: 2019Q3

REPORT INFORMATION
  Report Type: Spontaneous
  Country: US (occurrence: US)
  Receive Date: 20190805
  Receipt Date: 20190805
  Transmission Date: 20191004
  Serious: Yes (Life-Threatening, Hospitalization)
  Sender: FDA-Public Use
  Company Number: None

PATIENT
  Age: 38 Year
  Sex: Female

DRUGS (2)
  1. STELARA [Suspect]
     Active Substance: USTEKINUMAB
     Indication: PSORIASIS
     Dosage: ?          OTHER FREQUENCY:EVERY 12 WEEKS;?
     Route: 058
     Dates: start: 20180307
  2. METHOTREXATE 2.5MG TABLETS [Concomitant]
     Active Substance: METHOTREXATE

REACTIONS (5)
  - Epilepsy [None]
  - Urinary tract infection [None]
  - Hypertonic bladder [None]
  - Seizure [None]
  - Vaginal infection [None]

NARRATIVE: CASE EVENT DATE: 20190724
